FAERS Safety Report 10734232 (Version 1)
Quarter: 2015Q1

REPORT INFORMATION
  Report Type: Spontaneous
  Country: US (occurrence: US)
  Receive Date: 20150123
  Receipt Date: 20150123
  Transmission Date: 20150721
  Serious: No
  Sender: FDA-Public Use
  Company Number: US-B.I. PHARMACEUTICALS,INC./RIDGEFIELD-2015-BI-01764BP

PATIENT
  Sex: Male
  Weight: 92.98 kg

DRUGS (5)
  1. BUPROPION [Concomitant]
     Active Substance: BUPROPION
     Indication: DEPRESSION
     Route: 048
  2. SPIRIVA [Suspect]
     Active Substance: TIOTROPIUM BROMIDE MONOHYDRATE
     Indication: CHRONIC OBSTRUCTIVE PULMONARY DISEASE
     Dosage: 18 MCG
     Route: 055
     Dates: start: 2005
  3. ULORIC [Concomitant]
     Active Substance: FEBUXOSTAT
     Indication: GOUT
     Route: 048
  4. RISPERIDONE. [Concomitant]
     Active Substance: RISPERIDONE
     Indication: ELEVATED MOOD
     Route: 048
  5. INDOMETHACIN. [Concomitant]
     Active Substance: INDOMETHACIN
     Indication: COSTOCHONDRITIS
     Route: 048

REACTIONS (2)
  - Visual acuity reduced [Not Recovered/Not Resolved]
  - Motor dysfunction [Not Recovered/Not Resolved]
